FAERS Safety Report 25830226 (Version 1)
Quarter: 2025Q3

REPORT INFORMATION
  Report Type: Spontaneous
  Country: US (occurrence: US)
  Receive Date: 20250922
  Receipt Date: 20250922
  Transmission Date: 20251021
  Serious: Yes (Other)
  Sender: COOPERSURGICAL
  Company Number: US-COOPERSURGICAL, INC.-2025CPS006835

PATIENT
  Sex: Female
  Weight: 92.971 kg

DRUGS (3)
  1. PARAGARD T 380A [Suspect]
     Active Substance: COPPER
     Indication: Contraception
     Route: 015
     Dates: start: 20121025
  2. ABILIFY [Concomitant]
     Active Substance: ARIPIPRAZOLE
     Dates: start: 20150101
  3. VENLAFAXINE [Concomitant]
     Active Substance: VENLAFAXINE HYDROCHLORIDE
     Dates: start: 20150101

REACTIONS (19)
  - Reproductive complication associated with device [Not Recovered/Not Resolved]
  - Hysterectomy [Recovered/Resolved]
  - Salpingectomy [Recovered/Resolved]
  - Surgery [Recovered/Resolved]
  - Uterine leiomyoma [Recovered/Resolved]
  - Uterine abscess [Recovered/Resolved]
  - Device breakage [Recovered/Resolved]
  - Foreign body in reproductive tract [Recovered/Resolved]
  - Complication of device removal [Recovered/Resolved]
  - Embedded device [Recovered/Resolved]
  - Adenomyosis [Recovered/Resolved]
  - Emotional distress [Unknown]
  - Procedural pain [Recovered/Resolved]
  - Cervix scarring [Recovered/Resolved]
  - Sexual dysfunction [Recovered/Resolved]
  - Dyspareunia [Unknown]
  - Pelvic pain [Unknown]
  - Device expulsion [Recovered/Resolved]
  - Unevaluable event [Unknown]

NARRATIVE: CASE EVENT DATE: 20210101
